FAERS Safety Report 7563702-4 (Version None)
Quarter: 2011Q2

REPORT INFORMATION
  Report Type: 
  Country: None (occurrence: None)
  Receive Date: 20110622
  Receipt Date: 20110609
  Transmission Date: 20111010
  Serious: Yes (Other)
  Sender: FDA-Public Use
  Company Number: PHHY2011US50501

PATIENT
  Age: 47 Year
  Sex: Male
  Weight: 113 kg

DRUGS (16)
  1. WARFARIN SODIUM [Interacting]
     Dosage: 2.5 MG, UNK
  2. PACLITAXEL [Suspect]
     Dosage: 130 MG, UNK
     Route: 042
  3. RADIATION [Suspect]
  4. LOPERAMIDE [Suspect]
  5. DIPHENHYDRAMINE HCL [Suspect]
     Dosage: 25 MG, UNK
  6. CITALOPRAM HYDROBROMIDE [Suspect]
     Dosage: 10 MG, UNK
  7. ALPRAZOLAM [Suspect]
     Dosage: 0.5 MG, BID
  8. VITAMIN K TAB [Suspect]
  9. ERLOTINIB HYDROCHLORIDE [Interacting]
     Dosage: 150 MG, UNK
     Route: 048
  10. DEXAMETHASONE [Suspect]
     Dosage: 20 MG, UNK
  11. GRANISETRON [Suspect]
     Dosage: 1 MG, UNK
     Route: 042
  12. OXYCODONE HCL [Suspect]
     Indication: PAIN
     Dosage: 5 MG, (5-10 MG)
  13. CARBOPLATIN [Suspect]
     Dosage: 285 MG, UNK
     Route: 042
  14. CIMETIDINE [Suspect]
     Dosage: 300 MG, UNK
     Route: 042
  15. DARBEPOETIN ALFA [Suspect]
  16. BEVACIZUMAB [Suspect]
     Dosage: 1497 MG, EVERY THREE WEEKS

REACTIONS (7)
  - RASH [None]
  - HAEMATOMA [None]
  - DIARRHOEA [None]
  - INTERNATIONAL NORMALISED RATIO INCREASED [None]
  - SWELLING [None]
  - CONTUSION [None]
  - DRUG INTERACTION [None]
